FAERS Safety Report 7121286-9 (Version None)
Quarter: 2010Q4

REPORT INFORMATION
  Report Type: 
  Country: None (occurrence: None)
  Receive Date: 20101124
  Receipt Date: 20101115
  Transmission Date: 20110411
  Serious: Yes (Hospitalization)
  Sender: FDA-Public Use
  Company Number: FR-MYLANLABS-2010S1021211

PATIENT
  Age: 22 Year
  Sex: Male

DRUGS (6)
  1. CYSTAGON [Suspect]
     Indication: CYSTINOSIS
     Route: 048
     Dates: start: 19970101
  2. CYSTAGON [Suspect]
     Route: 048
  3. NEORAL [Concomitant]
     Dates: start: 20091201
  4. CELLCEPT /01275104/ [Concomitant]
     Dates: start: 20091201
  5. DIFFU-K [Concomitant]
  6. LEVOTHYROXINE SODIUM [Concomitant]

REACTIONS (5)
  - ABDOMINAL PAIN UPPER [None]
  - HEADACHE [None]
  - HICCUPS [None]
  - SOMNOLENCE [None]
  - VOMITING [None]
